FAERS Safety Report 5966779-2 (Version None)
Quarter: 2008Q4

REPORT INFORMATION
  Report Type: 
  Country: None (occurrence: None)
  Receive Date: 20081125
  Receipt Date: 20081121
  Transmission Date: 20090506
  Serious: Yes (Hospitalization)
  Sender: FDA-Public Use
  Company Number: UA-B.I. PHARMACEUTICALS,INC./RIDGEFIELD-2008-AP-00280AP

PATIENT
  Sex: Male
  Weight: 94 kg

DRUGS (2)
  1. MICARDIS [Suspect]
     Indication: HYPERTENSION
     Dosage: 80MG
     Route: 048
  2. ASPECARD [Concomitant]

REACTIONS (4)
  - BLINDNESS [None]
  - HYPERTENSION [None]
  - ISCHAEMIA [None]
  - NEUROPATHY PERIPHERAL [None]
